FAERS Safety Report 5735804-6 (Version None)
Quarter: 2008Q2

REPORT INFORMATION
  Report Type: 
  Country: None (occurrence: None)
  Receive Date: 20080508
  Receipt Date: 20080508
  Transmission Date: 20081010
  Serious: Yes (Other)
  Sender: FDA-Public Use
  Company Number: None

PATIENT
  Age: 46 Year
  Sex: Female
  Weight: 68.0396 kg

DRUGS (1)
  1. CREST PRO-HEALTH CREST [Suspect]
     Indication: DENTAL DISORDER PROPHYLAXIS
     Dosage: HALF CAP FULL EVERY NIGHT DENTAL
     Route: 004
     Dates: start: 20061010, end: 20080506

REACTIONS (4)
  - AGEUSIA [None]
  - ORAL DISCOMFORT [None]
  - TOOTH DISCOLOURATION [None]
  - TOOTH DISORDER [None]
